FAERS Safety Report 7338226-X (Version None)
Quarter: 2011Q1

REPORT INFORMATION
  Report Type: 
  Country: None (occurrence: None)
  Receive Date: 20110308
  Receipt Date: 20110222
  Transmission Date: 20110831
  Serious: Yes (Hospitalization, Other)
  Sender: FDA-Public Use
  Company Number: PHHY2011KR15624

PATIENT
  Age: 82 Year
  Sex: Female

DRUGS (6)
  1. VENTOLIN [Concomitant]
     Indication: DYSPNOEA
     Route: 045
  2. FORMOTEROL FUMARATE [Concomitant]
     Indication: DYSPNOEA
     Route: 045
  3. FENTANYL [Concomitant]
     Dosage: 10 UG, UNK
  4. AMINOPHYLLINE [Suspect]
     Dosage: 250 MG DILUTED IN 500 ML 5% DEXTROSE
     Route: 042
  5. DEXTROSE [Concomitant]
     Route: 042
  6. BUPIVACAINE HCL [Concomitant]

REACTIONS (6)
  - BLOOD PRESSURE DECREASED [None]
  - ATRIAL TACHYCARDIA [None]
  - ARRHYTHMIA [None]
  - BLOOD PRESSURE SYSTOLIC DECREASED [None]
  - HEART RATE INCREASED [None]
  - VASCULAR RESISTANCE SYSTEMIC DECREASED [None]
